FAERS Safety Report 16966131 (Version 2)
Quarter: 2019Q4

REPORT INFORMATION
  Report Type: Report from Study
  Country: JP (occurrence: JP)
  Receive Date: 20191028
  Receipt Date: 20191104
  Transmission Date: 20200122
  Serious: Yes (Hospitalization)
  Sender: FDA-Public Use
  Company Number: JP-KYOWAKIRIN-2019AKK016831

PATIENT

DRUGS (15)
  1. HIRUDOID [Concomitant]
     Active Substance: GLYCOSAMINOGLYCANS
     Indication: RASH
     Dosage: ADEQUATE DOSE, BID
     Route: 061
     Dates: start: 20181105, end: 20191023
  2. ANTEBATE [Concomitant]
     Active Substance: BETAMETHASONE DIPROPIONATE
     Indication: RASH
     Dosage: ADEQUATE DOSE, BID
     Route: 061
     Dates: start: 20181206, end: 20191023
  3. TOMIRON [Concomitant]
     Active Substance: CEFTERAM PIVOXIL
     Indication: ENCEPHALITIS
     Dosage: 100 MG, TID
     Route: 048
     Dates: start: 20191021, end: 20191023
  4. FEXOFENADINE HYDROCHLORIDE. [Concomitant]
     Active Substance: FEXOFENADINE HYDROCHLORIDE
     Indication: URTICARIA
     Dosage: 60 MG, PRN
     Route: 048
     Dates: start: 20190527, end: 20191023
  5. NIZORAL [Concomitant]
     Active Substance: KETOCONAZOLE
     Indication: RASH
     Dosage: ADEQUATE DOSE, QD
     Route: 061
     Dates: start: 20181206, end: 20191023
  6. TOVIAZ [Concomitant]
     Active Substance: FESOTERODINE FUMARATE
     Indication: DYSURIA
     Dosage: 4 MG, BID
     Route: 048
     Dates: start: 20180301, end: 20191023
  7. LOXOPROFEN NA [Concomitant]
     Active Substance: LOXOPROFEN SODIUM
     Indication: ENCEPHALITIS
     Dosage: 60 MG, PRN
     Route: 048
     Dates: start: 20191021, end: 20191023
  8. PASTARON [Concomitant]
     Active Substance: UREA
     Indication: RASH
     Dosage: ADEQUATE DOSE, BID
     Route: 061
     Dates: start: 20190716, end: 20191023
  9. LIDOMEX [Concomitant]
     Active Substance: PREDNISOLONE VALERATE ACETATE
     Indication: RASH
     Dosage: ADEQUATE DOSE, BID
     Route: 061
     Dates: start: 20181105, end: 20191023
  10. PREDNISOLONE. [Suspect]
     Active Substance: PREDNISOLONE
     Indication: TROPICAL SPASTIC PARESIS
     Dosage: 10 MG, QD
     Route: 048
     Dates: start: 20160228, end: 20191023
  11. CARBOCISTEINE [Concomitant]
     Active Substance: CARBOCYSTEINE
     Indication: ENCEPHALITIS
     Dosage: 250 MG, TID
     Route: 048
     Dates: start: 20191021, end: 20191023
  12. KINDAVATE [Concomitant]
     Active Substance: CLOBETASONE BUTYRATE
     Indication: RASH
     Dosage: ADEQUATE DOSE, BID
     Route: 061
     Dates: start: 20181105, end: 20191023
  13. GLYDIL [CHLORPHENAMINE MALEATE;GUAIFENESIN;METHYLEPHEDRINE HYDROCHLORI [Concomitant]
     Indication: RASH
     Dosage: ADEQUATE DOSE, BID
     Route: 061
     Dates: start: 20190716, end: 20191023
  14. MOGAMULIZUMAB [Suspect]
     Active Substance: MOGAMULIZUMAB
     Indication: TROPICAL SPASTIC PARESIS
     Dosage: 0.3 MG/KG, 1X/3MONTHS
     Route: 041
     Dates: start: 20181011
  15. LIORESAL [Concomitant]
     Active Substance: BACLOFEN
     Indication: TROPICAL SPASTIC PARESIS
     Dosage: 5 MG, BID
     Route: 048
     Dates: end: 20191023

REACTIONS (1)
  - Encephalitis [Not Recovered/Not Resolved]

NARRATIVE: CASE EVENT DATE: 20191023
